FAERS Safety Report 25684741 (Version 2)
Quarter: 2025Q3

REPORT INFORMATION
  Report Type: Report from Study
  Country: PR (occurrence: PR)
  Receive Date: 20250815
  Receipt Date: 20250818
  Transmission Date: 20251021
  Serious: Yes (Hospitalization, Other)
  Sender: ABBVIE
  Company Number: PR-ABBVIE-6416017

PATIENT
  Age: 70 Year
  Sex: Female
  Weight: 68 kg

DRUGS (14)
  1. ELAHERE [Suspect]
     Active Substance: MIRVETUXIMAB SORAVTANSINE-GYNX
     Indication: Fallopian tube cancer
     Dosage: 5 MG/ML INJECTION
     Route: 042
     Dates: start: 20250420, end: 20250706
  2. FLOMAX [Concomitant]
     Active Substance: TAMSULOSIN HYDROCHLORIDE
     Indication: Prophylaxis urinary tract infection
  3. MONTELUKAST [Concomitant]
     Active Substance: MONTELUKAST
     Indication: Product used for unknown indication
  4. ELIQUIS [Concomitant]
     Active Substance: APIXABAN
     Indication: Anticoagulant therapy
  5. SYNTHROID [Concomitant]
     Active Substance: LEVOTHYROXINE SODIUM
     Indication: Hypothyroidism
  6. GABAPENTIN [Concomitant]
     Active Substance: GABAPENTIN
     Indication: Neuralgia
  7. LOVAZA [Concomitant]
     Active Substance: OMEGA-3-ACID ETHYL ESTERS
     Indication: Product used for unknown indication
  8. CYMBALTA [Concomitant]
     Active Substance: DULOXETINE HYDROCHLORIDE
     Indication: Product used for unknown indication
  9. VITAMINS [Concomitant]
     Active Substance: VITAMINS
     Indication: Supplementation therapy
  10. XANAX [Concomitant]
     Active Substance: ALPRAZOLAM
     Indication: Sleep disorder
  11. COREG [Concomitant]
     Active Substance: CARVEDILOL
     Indication: Cardiac disorder
  12. VYTORIN [Concomitant]
     Active Substance: EZETIMIBE\SIMVASTATIN
     Indication: Blood cholesterol
  13. LOSARTAN [Concomitant]
     Active Substance: LOSARTAN
     Indication: Product used for unknown indication
  14. FENOFIBRIC ACID [Concomitant]
     Active Substance: FENOFIBRIC ACID
     Indication: Product used for unknown indication

REACTIONS (5)
  - Colitis [Recovered/Resolved]
  - Abdominal pain [Recovering/Resolving]
  - Neoplasm [Unknown]
  - Drug ineffective [Not Recovered/Not Resolved]
  - Diarrhoea [Recovered/Resolved]

NARRATIVE: CASE EVENT DATE: 20250401
